FAERS Safety Report 9339071 (Version 1)
Quarter: 2013Q3

REPORT INFORMATION
  Report Type: Spontaneous
  Country: US (occurrence: None)
  Receive Date: 20130606
  Receipt Date: 20130606
  Transmission Date: 20140516
  Serious: Yes (Hospitalization)
  Sender: FDA-Public Use
  Company Number: None

PATIENT
  Age: 71 Year
  Sex: Male
  Weight: 53.07 kg

DRUGS (5)
  1. METHOTREXATE [Suspect]
     Indication: TRANSITIONAL CELL CARCINOMA
     Dosage: EVERY 2 WEEKS
     Dates: start: 20130509, end: 20130523
  2. METHOTREXATE [Suspect]
     Dosage: EVERY 2 WEEKS
     Dates: start: 20130509, end: 20130523
  3. DOXORUBICIN [Suspect]
     Indication: TRANSITIONAL CELL CARCINOMA
     Dosage: NEULASTA EVERY 2 WEEKS
     Dates: start: 20130510, end: 20130524
  4. VINBLASTINE [Suspect]
     Dosage: 3MG/M2
  5. CISPLATIN [Suspect]
     Dosage: 70MG/M2

REACTIONS (1)
  - Urinary tract infection [None]
